FAERS Safety Report 6894972-3 (Version None)
Quarter: 2010Q3

REPORT INFORMATION
  Report Type: 
  Country: None (occurrence: None)
  Receive Date: 20100802
  Receipt Date: 20100726
  Transmission Date: 20110219
  Serious: Yes (Other)
  Sender: FDA-Public Use
  Company Number: GR-ROCHE-717791

PATIENT
  Age: 73 Year
  Sex: Female

DRUGS (1)
  1. BONIVA [Suspect]
     Indication: PRODUCT USED FOR UNKNOWN INDICATION
     Route: 065
     Dates: start: 20050101

REACTIONS (5)
  - DACRYOSTENOSIS ACQUIRED [None]
  - EMPYEMA [None]
  - EPISTAXIS [None]
  - OSTEONECROSIS OF JAW [None]
  - SINUSITIS [None]
